FAERS Safety Report 15446417 (Version 2)
Quarter: 2018Q4

REPORT INFORMATION
  Report Type: Spontaneous
  Country: US (occurrence: US)
  Receive Date: 20180928
  Receipt Date: 20181024
  Transmission Date: 20190204
  Serious: No
  Sender: FDA-Public Use
  Company Number: US-BEH-2018095205

PATIENT
  Sex: Female
  Weight: 60 kg

DRUGS (1)
  1. HIZENTRA [Suspect]
     Active Substance: HUMAN IMMUNOGLOBULIN G
     Indication: CHRONIC INFLAMMATORY DEMYELINATING POLYRADICULONEUROPATHY
     Dosage: 12 G, QW
     Route: 065
     Dates: start: 201803, end: 201805

REACTIONS (3)
  - Patient dissatisfaction with treatment [Recovered/Resolved]
  - Infusion site pain [Recovered/Resolved]
  - Infusion site nodule [Recovered/Resolved]

NARRATIVE: CASE EVENT DATE: 201803
